FAERS Safety Report 6219581-0 (Version None)
Quarter: 2009Q2

REPORT INFORMATION
  Report Type: 
  Country: None (occurrence: None)
  Receive Date: 20090609
  Receipt Date: 20090603
  Transmission Date: 20091009
  Serious: Yes (Other)
  Sender: FDA-Public Use
  Company Number: US-JNJFOC-20090601442

PATIENT
  Age: 63 Year
  Sex: Female
  Weight: 74.84 kg

DRUGS (2)
  1. ERTACZO [Suspect]
     Indication: TINEA PEDIS
     Route: 061
  2. SYNTHROID [Concomitant]
     Route: 065

REACTIONS (3)
  - BURNING SENSATION [None]
  - ERYTHEMA [None]
  - SWELLING [None]
